FAERS Safety Report 6432844-9 (Version None)
Quarter: 2009Q4

REPORT INFORMATION
  Report Type: 
  Country: None (occurrence: None)
  Receive Date: 20091109
  Receipt Date: 20091030
  Transmission Date: 20100525
  Serious: Yes (Hospitalization)
  Sender: FDA-Public Use
  Company Number: B0600883A

PATIENT
  Age: 62 Year
  Sex: Female

DRUGS (6)
  1. ZOPHREN [Suspect]
     Route: 042
     Dates: start: 20090212, end: 20090306
  2. EPIRUBICIN [Suspect]
     Indication: BREAST CANCER
     Dosage: 160MG CYCLIC
     Dates: start: 20090212, end: 20090306
  3. CYCLOPHOSPHAMIDE [Suspect]
     Indication: BREAST CANCER
     Dosage: 780MG CYCLIC
     Route: 042
     Dates: start: 20090212, end: 20090306
  4. FLUOROURACIL [Suspect]
     Indication: BREAST CANCER
     Dosage: 780MG CYCLIC
     Route: 042
     Dates: start: 20090212, end: 20090306
  5. METHYLPREDNISOLONE 4MG TAB [Suspect]
     Indication: BREAST CANCER
     Dosage: 60MG CYCLIC
     Route: 042
     Dates: start: 20090212, end: 20090306
  6. FLUOXETINE [Concomitant]

REACTIONS (2)
  - RASH PAPULAR [None]
  - TOXIC SKIN ERUPTION [None]
